FAERS Safety Report 10510543 (Version 1)
Quarter: 2014Q4

REPORT INFORMATION
  Report Type: Spontaneous
  Country: US (occurrence: None)
  Receive Date: 20141009
  Receipt Date: 20141009
  Transmission Date: 20150528
  Serious: Yes (Hospitalization)
  Sender: FDA-Public Use
  Company Number: None

PATIENT
  Age: 61 Year
  Sex: Male
  Weight: 39.9 kg

DRUGS (1)
  1. DIVALPROEX [Suspect]
     Active Substance: DIVALPROEX SODIUM
     Dosage: MG BID PO
     Route: 048
     Dates: start: 20140705

REACTIONS (5)
  - Toxicity to various agents [None]
  - Presyncope [None]
  - Ammonia increased [None]
  - Dizziness [None]
  - Cognitive disorder [None]

NARRATIVE: CASE EVENT DATE: 20140704
